FAERS Safety Report 8538562-5 (Version None)
Quarter: 2012Q3

REPORT INFORMATION
  Report Type: 
  Country: None (occurrence: None)
  Receive Date: 20120718
  Receipt Date: 20120718
  Transmission Date: 20120928
  Serious: No
  Sender: FDA-Public Use
  Company Number: None

PATIENT
  Age: 67 Year
  Sex: Female
  Weight: 58.9676 kg

DRUGS (2)
  1. LEVAQUIN [Suspect]
     Indication: CHEST DISCOMFORT
     Dates: start: 20120521, end: 20120527
  2. LEVAQUIN [Suspect]
     Indication: SINUS CONGESTION
     Dates: start: 20120521, end: 20120527

REACTIONS (4)
  - JOINT SWELLING [None]
  - MYALGIA [None]
  - HEADACHE [None]
  - VISION BLURRED [None]
